FAERS Safety Report 5367081-2 (Version None)
Quarter: 2007Q2

REPORT INFORMATION
  Report Type: 
  Country: None (occurrence: None)
  Receive Date: 20070622
  Receipt Date: 20070621
  Transmission Date: 20071010
  Serious: Yes (Hospitalization)
  Sender: FDA-Public Use
  Company Number: B0476193A

PATIENT
  Age: 34 Year
  Sex: Male

DRUGS (2)
  1. CLAMOXYL [Suspect]
     Indication: TOOTH ABSCESS
     Route: 048
     Dates: start: 20070209, end: 20070209
  2. VOLTAREN [Concomitant]
     Indication: TOOTH ABSCESS
     Route: 048
     Dates: start: 20070209, end: 20070209

REACTIONS (5)
  - FATIGUE [None]
  - HYPOTENSION [None]
  - LARYNGEAL OEDEMA [None]
  - TACHYCARDIA [None]
  - URTICARIA [None]
